FAERS Safety Report 11501967 (Version 2)
Quarter: 2016Q1

REPORT INFORMATION
  Report Type: Spontaneous
  Country: US (occurrence: US)
  Receive Date: 20150914
  Receipt Date: 20160222
  Transmission Date: 20160525
  Serious: Yes (Other)
  Sender: FDA-Public Use
  Company Number: US-SA-2015SA138106

PATIENT
  Age: 73 Year
  Sex: Female
  Weight: 116 kg

DRUGS (6)
  1. NASAL SALINE [Concomitant]
     Active Substance: SODIUM CHLORIDE
     Indication: NASAL CONGESTION
     Dosage: 3 % NASAL SPRAY ONCE PER DAY WHEN NEEDED
     Route: 045
     Dates: start: 201501
  2. MULTAQ [Suspect]
     Active Substance: DRONEDARONE
     Indication: ATRIAL FIBRILLATION
     Route: 065
     Dates: start: 20150505, end: 201509
  3. METOPROLOL. [Concomitant]
     Active Substance: METOPROLOL
     Indication: BLOOD PRESSURE MEASUREMENT
     Route: 065
     Dates: start: 201303, end: 201507
  4. FLUTICASONE PROPIONATE. [Concomitant]
     Active Substance: FLUTICASONE PROPIONATE
     Indication: SEASONAL ALLERGY
     Dosage: NASAL SPRAY
     Route: 045
     Dates: start: 2001
  5. SYSTANE (HYPROMELLOSE 2910 (4000 MPA.S)) [Concomitant]
     Active Substance: HYPROMELLOSE 2910 (4000 MPA.S)
     Indication: DRY EYE
     Dosage: FROM: LUBRICATE, ONCE AS NEEDED
     Route: 065
     Dates: start: 201501
  6. WARFARIN [Concomitant]
     Active Substance: WARFARIN
     Indication: ATRIAL FIBRILLATION
     Dosage: 5 MG DAILY, EXCEPT TWICE PER WEEK WHEN THE PATIENT TOOK 2.5 MG
     Route: 065
     Dates: start: 201411

REACTIONS (2)
  - Heart rate increased [Unknown]
  - Atrial fibrillation [Not Recovered/Not Resolved]

NARRATIVE: CASE EVENT DATE: 20150904
